FAERS Safety Report 25880581 (Version 1)
Quarter: 2025Q4

REPORT INFORMATION
  Report Type: Spontaneous
  Country: US (occurrence: US)
  Receive Date: 20251004
  Receipt Date: 20251004
  Transmission Date: 20260117
  Serious: No
  Sender: ABBVIE
  Company Number: US-ABBVIE-6487622

PATIENT

DRUGS (2)
  1. HUMIRA [Suspect]
     Active Substance: ADALIMUMAB
     Indication: Product used for unknown indication
     Dosage: 2 BOX?KIT
     Route: 058
  2. HUMIRA [Suspect]
     Active Substance: ADALIMUMAB
     Dosage: 2 BOX?KIT?LAST DOSE
     Route: 058
     Dates: start: 20250529

REACTIONS (7)
  - Accidental exposure to product [Unknown]
  - Psoriasis [Unknown]
  - Skin laceration [Unknown]
  - Device delivery system issue [Unknown]
  - Device defective [Unknown]
  - Needle issue [Unknown]
  - Exposure via skin contact [Unknown]

NARRATIVE: CASE EVENT DATE: 20250612
